FAERS Safety Report 23061733 (Version 1)
Quarter: 2023Q4

REPORT INFORMATION
  Report Type: Spontaneous
  Country: KE (occurrence: KE)
  Receive Date: 20231013
  Receipt Date: 20231013
  Transmission Date: 20240110
  Serious: Yes (Death, Other)
  Sender: FDA-Public Use
  Company Number: KE-TAKEDA-2022TUS038002

PATIENT
  Sex: Male

DRUGS (2)
  1. ICLUSIG [Suspect]
     Active Substance: PONATINIB
     Indication: Chronic myeloid leukaemia
     Dosage: 30 MILLIGRAM, BID
     Route: 065
     Dates: start: 202111
  2. ICLUSIG [Suspect]
     Active Substance: PONATINIB
     Dosage: 45 MILLIGRAM, BID
     Route: 065

REACTIONS (4)
  - Chronic myeloid leukaemia [Fatal]
  - White blood cell count increased [Unknown]
  - Drug resistance [Unknown]
  - Treatment failure [Unknown]
